FAERS Safety Report 8083334-1 (Version None)
Quarter: 2012Q1

REPORT INFORMATION
  Report Type: 
  Country: None (occurrence: None)
  Receive Date: 20120127
  Receipt Date: 20110111
  Transmission Date: 20120608
  Serious: No
  Sender: FDA-Public Use
  Company Number: US-ABBOTT-11P-163-0697612-00

PATIENT
  Sex: Female
  Weight: 45.4 kg

DRUGS (2)
  1. HUMIRA [Suspect]
     Indication: CROHN'S DISEASE
     Route: 058
     Dates: start: 20101101
  2. UNKNOWN MEDICATIONS [Concomitant]
     Indication: PRODUCT USED FOR UNKNOWN INDICATION

REACTIONS (5)
  - PHARYNGEAL ERYTHEMA [None]
  - MIDDLE EAR EFFUSION [None]
  - INJECTION SITE HAEMORRHAGE [None]
  - UPPER RESPIRATORY TRACT INFECTION [None]
  - INJECTION SITE EXTRAVASATION [None]
